FAERS Safety Report 12774241 (Version 1)
Quarter: 2016Q3

REPORT INFORMATION
  Report Type: Spontaneous
  Country: NL (occurrence: NL)
  Receive Date: 20160923
  Receipt Date: 20160923
  Transmission Date: 20161109
  Serious: Yes (Hospitalization)
  Sender: FDA-Public Use
  Company Number: NL-TEVA-693422ACC

PATIENT
  Age: 57 Year
  Sex: Female
  Weight: 97 kg

DRUGS (8)
  1. SULFASALAZINE TABLET 500MG [Suspect]
     Active Substance: SULFASALAZINE
     Indication: RHEUMATOID ARTHRITIS
     Dosage: 1000 MILLIGRAM DAILY; 2 TIMES PER DAY 4 PIECE(S), ADDITIONAL INFO: 500MG
     Route: 048
     Dates: start: 20040101, end: 20160511
  2. METHOTREXAT TABLET 10MG [Suspect]
     Active Substance: METHOTREXATE
     Indication: RHEUMATOID ARTHRITIS
     Dosage: 1 TIME PER WEEK 1 PIECE(S), ADDITIONAL INFO: 25MG WEEKLY
     Route: 048
     Dates: start: 20040101, end: 20160511
  3. PANTOZOL TABLET MSR 40MG [Concomitant]
     Dosage: 40 MILLIGRAM DAILY; 1 TIME PER DAY 1 PIECE(S), ADDITIONAL INFO: 40MG
     Route: 048
     Dates: start: 20040101
  4. ETANERCEPT INJVLST 50MG/ML [Suspect]
     Active Substance: ETANERCEPT
     Indication: RHEUMATOID ARTHRITIS
     Dosage: 1 TIME PER WEEK 1 PIECE(S), ADDITIONAL INFO: 50MG
     Route: 058
     Dates: start: 20150827
  5. LISINOPRIL TABLET 10MG [Concomitant]
     Active Substance: LISINOPRIL
     Dosage: 10 MILLIGRAM DAILY; 1 TIME PER DAY 1 PIECE(S), ADDITIONAL INFO: 10MG
     Route: 048
     Dates: start: 20100101
  6. PLAQUENIL [Suspect]
     Active Substance: HYDROXYCHLOROQUINE SULFATE
     Indication: SYSTEMIC LUPUS ERYTHEMATOSUS
     Dosage: 200 MILLIGRAM DAILY; 1 TIME PER DAY 1 PIECE(S), ADDITIONAL INFO: 200MG
     Route: 048
     Dates: start: 20060101
  7. BISOPROLOL TABLET  10MG [Concomitant]
     Dosage: 10 MILLIGRAM DAILY; 1 TIME PER DAY 1 PIECE(S), ADDITIONAL INFO: 10MG
     Route: 048
     Dates: start: 20100101
  8. TRIAMTEREEN/HYDROCHLOORTHIAZIDE TABLET 50/25MG [Concomitant]
     Dosage: 1 DOSAGE FORMS DAILY; 1 TIME PER DAY 1 PIECE(S), ADDITIONAL INFO: 50/4
     Route: 048
     Dates: start: 20150801

REACTIONS (1)
  - Haemolytic anaemia [Not Recovered/Not Resolved]

NARRATIVE: CASE EVENT DATE: 20160411
